FAERS Safety Report 13462835 (Version 5)
Quarter: 2017Q2

REPORT INFORMATION
  Report Type: Spontaneous
  Country: US (occurrence: US)
  Receive Date: 20170420
  Receipt Date: 20170616
  Transmission Date: 20170830
  Serious: No
  Sender: FDA-Public Use
  Company Number: US-PFIZER INC-2017172050

PATIENT
  Age: 67 Year
  Sex: Female
  Weight: 77 kg

DRUGS (11)
  1. VFEND [Suspect]
     Active Substance: VORICONAZOLE
     Indication: ASPERGILLUS INFECTION
     Dosage: 200 MG, 2X/DAY
     Route: 048
     Dates: start: 20161007
  2. SYNTHROID [Concomitant]
     Active Substance: LEVOTHYROXINE SODIUM
     Indication: AUTOIMMUNE THYROIDITIS
     Dosage: UNK
  3. LASIX [Concomitant]
     Active Substance: FUROSEMIDE
     Indication: DIURETIC THERAPY
     Dosage: UNK
     Dates: start: 201612
  4. VORICONAZOLE. [Concomitant]
     Active Substance: VORICONAZOLE
     Indication: ASPERGILLUS INFECTION
     Dosage: 200 MG, 3X/DAY
     Route: 048
     Dates: start: 20161007, end: 20170525
  5. ASPIRIN /00002701/ [Concomitant]
     Active Substance: ASPIRIN
     Indication: HYPERTENSION
  6. AMLODIPINE [Concomitant]
     Active Substance: AMLODIPINE BESYLATE
     Indication: HYPERTENSION
     Dosage: 5 MG, 1X/DAY
     Dates: start: 2016
  7. VFEND [Suspect]
     Active Substance: VORICONAZOLE
     Dosage: 200 MG, 3X/DAY
     Route: 048
     Dates: start: 20161121, end: 20170525
  8. SULFAMETHOXAZOLE AND TRIMETHOPRIM [Concomitant]
     Active Substance: SULFAMETHOXAZOLE\TRIMETHOPRIM
     Indication: INFECTION
     Dosage: 1 DF, 2X/DAY ([SULFAMETHOXAZOLE: 800 MG/TRIMETHOPRIM: 160 MG])
     Route: 048
     Dates: start: 20161219
  9. ASPIRIN /00002701/ [Concomitant]
     Active Substance: ASPIRIN
     Indication: PROPHYLAXIS
     Dosage: 81 MG, 1X/DAY
     Dates: start: 201603
  10. POTASSIUM [Concomitant]
     Active Substance: POTASSIUM
     Indication: DIURETIC THERAPY
     Dosage: 200 MG, WEEKLY
     Dates: start: 201612
  11. LEVAQUIN [Concomitant]
     Active Substance: LEVOFLOXACIN
     Indication: IMMUNODEFICIENCY
     Dosage: 500 MG, CYCLIC
     Dates: end: 201612

REACTIONS (7)
  - Dyspnoea exertional [Not Recovered/Not Resolved]
  - Lung disorder [Unknown]
  - Drug ineffective [Unknown]
  - Drug level below therapeutic [Not Recovered/Not Resolved]
  - Peripheral swelling [Not Recovered/Not Resolved]
  - Heart rate increased [Not Recovered/Not Resolved]
  - Laboratory test abnormal [Unknown]

NARRATIVE: CASE EVENT DATE: 2017
